FAERS Safety Report 11602008 (Version 1)
Quarter: 2015Q4

REPORT INFORMATION
  Report Type: Spontaneous
  Country: US (occurrence: US)
  Receive Date: 20151006
  Receipt Date: 20151006
  Transmission Date: 20160304
  Serious: No
  Sender: FDA-Public Use
  Company Number: US-AMGEN-USASP2015052196

PATIENT
  Sex: Female

DRUGS (1)
  1. PROLIA [Suspect]
     Active Substance: DENOSUMAB
     Indication: OSTEOPOROSIS
     Dosage: UNK
     Route: 065

REACTIONS (22)
  - Constipation [Unknown]
  - Rash [Unknown]
  - Abdominal distension [Recovering/Resolving]
  - Abdominal pain [Unknown]
  - Insomnia [Unknown]
  - Diarrhoea [Recovering/Resolving]
  - Abdominal discomfort [Unknown]
  - Pain in extremity [Unknown]
  - Muscle spasms [Recovering/Resolving]
  - Drug effect delayed [Unknown]
  - Pruritus [Unknown]
  - Asthenia [Unknown]
  - Weight decreased [Unknown]
  - Change of bowel habit [Unknown]
  - Urticaria [Unknown]
  - Flatulence [Unknown]
  - Erythema [Unknown]
  - Chest discomfort [Unknown]
  - Weight increased [Unknown]
  - Decreased appetite [Unknown]
  - Abdominal pain upper [Unknown]
  - Infrequent bowel movements [Unknown]
